FAERS Safety Report 7915913-3 (Version None)
Quarter: 2011Q4

REPORT INFORMATION
  Report Type: 
  Country: None (occurrence: None)
  Receive Date: 20111115
  Receipt Date: 20111031
  Transmission Date: 20120403
  Serious: Yes (Other)
  Sender: FDA-Public Use
  Company Number: ES-PFIZER INC-2011224371

PATIENT
  Age: 72 Year
  Sex: Male

DRUGS (6)
  1. BISOPROLOL FUMARATE [Suspect]
     Dosage: UNK
     Dates: start: 20060525, end: 20090801
  2. BISOPROLOL FUMARATE [Suspect]
     Dosage: 7.5 MG, UNK
     Dates: start: 20090801, end: 20090912
  3. AMIODARONE HCL [Suspect]
     Indication: ATRIAL FIBRILLATION
     Dosage: 200 MG, 5 DAYS A WEEK
     Dates: start: 20060103, end: 20060130
  4. DIGOXIN [Suspect]
     Indication: ATRIAL FIBRILLATION
     Dosage: 0.125 MG, 2X/WEEK
     Dates: start: 20050825, end: 20050901
  5. BISOPROLOL FUMARATE [Suspect]
     Indication: ATRIAL FIBRILLATION
     Dosage: 5 MG DAILY
     Dates: start: 20060130, end: 20060208
  6. DILTIAZEM HCL [Suspect]
     Indication: ATRIAL FIBRILLATION
     Dosage: 120 MG, 2X/DAY
     Dates: start: 20031101, end: 20060525

REACTIONS (5)
  - BRADYCARDIA [None]
  - HYPOTHYROIDISM [None]
  - TOXICITY TO VARIOUS AGENTS [None]
  - ATRIAL FIBRILLATION [None]
  - THERAPEUTIC RESPONSE DECREASED [None]
